FAERS Safety Report 5535881-1 (Version None)
Quarter: 2007Q4

REPORT INFORMATION
  Report Type: 
  Country: None (occurrence: None)
  Receive Date: 20071206
  Receipt Date: 20070616
  Transmission Date: 20080405
  Serious: Yes (Hospitalization, Other)
  Sender: FDA-Public Use
  Company Number: US-AMGEN-STX229989

PATIENT
  Sex: Female

DRUGS (2)
  1. ENBREL [Suspect]
     Indication: RHEUMATOID ARTHRITIS
     Route: 058
     Dates: start: 19960101
  2. METHOTREXATE [Concomitant]
     Route: 048

REACTIONS (3)
  - ARTHRALGIA [None]
  - DIARRHOEA [None]
  - GASTROENTERITIS BACTERIAL [None]
